FAERS Safety Report 4285031-7 (Version None)
Quarter: 2004Q1

REPORT INFORMATION
  Report Type: 
  Country: None (occurrence: None)
  Receive Date: 20040204
  Receipt Date: 20040119
  Transmission Date: 20041129
  Serious: Yes (Hospitalization)
  Sender: FDA-Public Use
  Company Number: WAES 0401AUT00004

PATIENT
  Age: 25 Year
  Sex: Female

DRUGS (6)
  1. [COMPOSITION UNSPECIFIED] [Concomitant]
     Indication: ASTHMA
  2. CLARITHROMYCIN [Concomitant]
     Indication: ASTHMA
     Route: 048
     Dates: start: 20030923
  3. FLUTICASONE PROPIONATE [Concomitant]
     Route: 048
     Dates: start: 20020601
  4. FLUTICASONE PROPIONATE AND SALMETEROL XINAFOATE [Suspect]
     Indication: ASTHMA
     Dates: start: 20020624
  5. SINGULAIR [Suspect]
     Indication: ASTHMA
     Route: 048
     Dates: start: 20020101, end: 20020701
  6. SINGULAIR [Suspect]
     Route: 048
     Dates: start: 20030923, end: 20031201

REACTIONS (2)
  - ALLERGIC GRANULOMATOUS ANGIITIS [None]
  - DRUG INTERACTION [None]
